FAERS Safety Report 8840581 (Version 2)
Quarter: 2012Q4

REPORT INFORMATION
  Report Type: 
  Country: US (occurrence: US)
  Receive Date: 20121015
  Receipt Date: 20121101
  Transmission Date: 20130627
  Serious: Yes (Other)
  Sender: FDA-Public Use
  Company Number: US-PFIZER INC-2012254617

PATIENT
  Age: 76 Year
  Sex: Female
  Weight: 54.42 kg

DRUGS (15)
  1. LYRICA [Suspect]
     Indication: FIBROMYALGIA
     Dosage: 50 mg, 2x/day
     Dates: start: 20081223, end: 200903
  2. LYRICA [Suspect]
     Dosage: 75 mg, 2x/day
     Dates: start: 20120927
  3. LYRICA [Suspect]
     Dosage: 75 mg, daily
     Dates: start: 201209
  4. LYRICA [Suspect]
     Dosage: 50 mg, 2x/day
     Dates: start: 20121002
  5. LYRICA [Suspect]
     Dosage: 50 mg, daily
     Dates: start: 201210
  6. LYRICA [Suspect]
     Dosage: 75 mg, 1x/day
     Route: 048
     Dates: start: 20120927, end: 2012
  7. LYRICA [Suspect]
     Dosage: 50 mg, 1x/day
     Route: 048
     Dates: start: 2012, end: 2012
  8. LYRICA [Suspect]
     Dosage: 25 mg, 1x/day
     Route: 048
     Dates: start: 2012, end: 20121024
  9. LYRICA [Suspect]
     Dosage: UNK, 1x/day
     Route: 048
  10. ADVAIR [Concomitant]
     Indication: ASTHMA
     Dosage: 500/50 mcg daily
  11. ADVAIR [Concomitant]
     Dosage: 500/50 mg
  12. SINGULAIR [Concomitant]
     Indication: ASTHMA
     Dosage: 10 mg, daily
  13. LORATADINE [Concomitant]
     Dosage: 10 mg, daily
  14. ASTELIN [Concomitant]
     Indication: SINUS DISORDER
     Dosage: UNK
     Route: 045
  15. FLUTICASONE [Concomitant]
     Indication: SINUS DISORDER
     Dosage: UNK
     Route: 045

REACTIONS (12)
  - Asthma [Unknown]
  - Mental impairment [Unknown]
  - Memory impairment [Unknown]
  - Dizziness [Unknown]
  - Impaired driving ability [Unknown]
  - Incorrect dose administered [Unknown]
  - Insomnia [Not Recovered/Not Resolved]
  - Tremor [Not Recovered/Not Resolved]
  - Feeling abnormal [Not Recovered/Not Resolved]
  - Agitation [Not Recovered/Not Resolved]
  - Disturbance in attention [Not Recovered/Not Resolved]
  - Drug intolerance [Unknown]
